FAERS Safety Report 15247159 (Version 1)
Quarter: 2018Q3

REPORT INFORMATION
  Report Type: Report from Study
  Country: None (occurrence: US)
  Receive Date: 20180807
  Receipt Date: 20180807
  Transmission Date: 20181010
  Serious: Yes (Hospitalization, Other)
  Sender: FDA-Public Use
  Company Number: US-ABBVIE-18K-163-2335667-00

PATIENT
  Age: 79 Year
  Sex: Male

DRUGS (1)
  1. HUMIRA [Suspect]
     Active Substance: ADALIMUMAB
     Indication: COLITIS ULCERATIVE
     Route: 058
     Dates: start: 20180115, end: 20180409

REACTIONS (6)
  - Dementia [Recovering/Resolving]
  - Oral mucosal erythema [Recovering/Resolving]
  - Weight decreased [Not Recovered/Not Resolved]
  - Loss of consciousness [Recovering/Resolving]
  - Meningitis cryptococcal [Recovered/Resolved]
  - Immunodeficiency [Unknown]

NARRATIVE: CASE EVENT DATE: 201804
